FAERS Safety Report 4861264-3 (Version None)
Quarter: 2005Q4

REPORT INFORMATION
  Report Type: 
  Country: None (occurrence: None)
  Receive Date: 20051216
  Receipt Date: 20051206
  Transmission Date: 20060501
  Serious: Yes (Other)
  Sender: FDA-Public Use
  Company Number: 2005165160

PATIENT
  Age: 53 Year
  Sex: Female
  Weight: 65.7716 kg

DRUGS (7)
  1. LIPITOR [Suspect]
     Indication: BLOOD CHOLESTEROL INCREASED
     Dosage: 10 MG (10 MG,1 IN 1 D), ORAL
     Route: 048
     Dates: start: 20051118, end: 20051203
  2. IMURAN [Concomitant]
  3. PREDNISONE [Concomitant]
  4. MESTINON [Concomitant]
  5. NEXIUM [Concomitant]
  6. PRINIVIL [Concomitant]
  7. VICODIN [Concomitant]

REACTIONS (3)
  - CONTUSION [None]
  - HALLUCINATION [None]
  - PSYCHOTIC DISORDER [None]
